FAERS Safety Report 17879362 (Version 1)
Quarter: 2020Q2

REPORT INFORMATION
  Report Type: Spontaneous
  Country: US (occurrence: US)
  Receive Date: 20200610
  Receipt Date: 20200610
  Transmission Date: 20200714
  Serious: No
  Sender: FDA-Public Use
  Company Number: US-TEVA-2020-US-1245467

PATIENT
  Age: 66 Year
  Sex: Female

DRUGS (5)
  1. BENADRYL [Concomitant]
     Active Substance: DIPHENHYDRAMINE HYDROCHLORIDE
     Indication: PREMEDICATION
  2. DEXAMETHASONE. [Concomitant]
     Active Substance: DEXAMETHASONE
     Indication: PREMEDICATION
  3. AVASTIN [Concomitant]
     Active Substance: BEVACIZUMAB
  4. OXALIPLATIN TEVA [Suspect]
     Active Substance: OXALIPLATIN
     Indication: NEOPLASM MALIGNANT
     Dosage: 236 MG ON 07-MAY-2020; FOURTH CYCLE
     Route: 050
  5. PEPCID [Concomitant]
     Active Substance: FAMOTIDINE
     Indication: PREMEDICATION

REACTIONS (2)
  - Stridor [Unknown]
  - Hypertension [Unknown]

NARRATIVE: CASE EVENT DATE: 20200507
